FAERS Safety Report 16772095 (Version 1)
Quarter: 2019Q3

REPORT INFORMATION
  Report Type: Spontaneous
  Country: US (occurrence: US)
  Receive Date: 20190904
  Receipt Date: 20190904
  Transmission Date: 20191005
  Serious: No
  Sender: FDA-Public Use
  Company Number: US-ASCEND THERAPEUTICS US, LLC-2074017

PATIENT
  Age: 46 Year
  Sex: Female

DRUGS (2)
  1. TESTOSTERONE (TESTOSTERONE) 0.1 PERCENT GEL) UNKNOWN [Suspect]
     Active Substance: TESTOSTERONE
  2. ESTROGEL [Suspect]
     Active Substance: ESTRADIOL
     Indication: VULVITIS

REACTIONS (2)
  - Off label use [None]
  - Therapeutic response unexpected [None]
